FAERS Safety Report 15797907 (Version 1)
Quarter: 2019Q1

REPORT INFORMATION
  Report Type: Spontaneous
  Country: GB (occurrence: GB)
  Receive Date: 20190108
  Receipt Date: 20190108
  Transmission Date: 20190417
  Serious: Yes (Hospitalization)
  Sender: FDA-Public Use
  Company Number: GB-009507513-1901GBR000821

PATIENT
  Age: 76 Year
  Sex: Female

DRUGS (11)
  1. ALENDRONATE SODIUM. [Suspect]
     Active Substance: ALENDRONATE SODIUM
  2. CARBOCYSTEINE [Suspect]
     Active Substance: CARBOCYSTEINE
  3. TRELEGY ELLIPTA [Concomitant]
     Active Substance: FLUTICASONE FUROATE\UMECLIDINIUM BROMIDE\VILANTEROL TRIFENATATE
     Dosage: 92MICROGRAMS/DOSE / 55MICROGRAMS/DOSE / 22MICROGRAMS
  4. ALBUTEROL. [Concomitant]
     Active Substance: ALBUTEROL
     Dosage: 200MICROGRAMS/DOSE DRY POWDER INHALER
  5. GABAPENTIN. [Concomitant]
     Active Substance: GABAPENTIN
  6. ACETAMINOPHEN. [Concomitant]
     Active Substance: ACETAMINOPHEN
  7. ZIMOVANE [Concomitant]
     Active Substance: ZOPICLONE
  8. RANITIDINE. [Concomitant]
     Active Substance: RANITIDINE
     Indication: DYSPEPSIA
     Dosage: IN THE MORNING, ONLY TOOK AS NECESSARY
  9. CITALOPRAM [Suspect]
     Active Substance: CITALOPRAM HYDROBROMIDE
     Dosage: 20 MILLIGRAM
  10. LISINOPRIL. [Concomitant]
     Active Substance: LISINOPRIL
  11. ADCAL-D3 [Concomitant]
     Active Substance: CALCIUM CARBONATE\CHOLECALCIFEROL
     Dosage: 750MG/200UNIT

REACTIONS (3)
  - Upper gastrointestinal haemorrhage [Recovering/Resolving]
  - Barrett^s oesophagus [Unknown]
  - Haematemesis [Unknown]
